FAERS Safety Report 9706014 (Version 2)
Quarter: 2013Q4

REPORT INFORMATION
  Report Type: Spontaneous
  Country: US (occurrence: US)
  Receive Date: 20131122
  Receipt Date: 20131126
  Transmission Date: 20140711
  Serious: Yes (Other)
  Sender: FDA-Public Use
  Company Number: US-B.I. PHARMACEUTICALS,INC./RIDGEFIELD-2013-BI-37971BP

PATIENT
  Age: 72 Year
  Sex: Female
  Weight: 70 kg

DRUGS (9)
  1. SPIRIVA [Suspect]
     Dosage: 18 MCG
     Route: 055
     Dates: start: 2009
  2. ADVAIR DISKUS [Concomitant]
     Dosage: STRENGTH: 250 MCG / 50 MCG; DAILY DOSE: 500 MCG / 100 MCG
     Route: 055
  3. GABAPENTIN [Concomitant]
     Indication: NEUROPATHY PERIPHERAL
     Dosage: 600 MG
     Route: 048
  4. FOLIC ACID [Concomitant]
     Dosage: 1 MG
     Route: 048
  5. XANAX [Concomitant]
     Indication: ANXIETY
     Route: 048
  6. LOMOTIL [Concomitant]
     Indication: COLITIS
     Route: 048
  7. ZOFRAN [Concomitant]
     Indication: NAUSEA
     Route: 048
  8. MECLIZINE [Concomitant]
     Route: 048
  9. DEXAMETHASONE [Concomitant]
     Route: 048

REACTIONS (6)
  - Lung carcinoma cell type unspecified recurrent [Unknown]
  - Lung carcinoma cell type unspecified recurrent [Not Recovered/Not Resolved]
  - Blood pressure decreased [Recovered/Resolved]
  - Dizziness [Recovered/Resolved]
  - Blood pressure increased [Recovered/Resolved]
  - Weight increased [Unknown]
